FAERS Safety Report 7934568-5 (Version None)
Quarter: 2011Q4

REPORT INFORMATION
  Report Type: 
  Country: None (occurrence: None)
  Receive Date: 20111118
  Receipt Date: 20111109
  Transmission Date: 20120403
  Serious: No
  Sender: FDA-Public Use
  Company Number: SPI201100258

PATIENT
  Age: 78 Year
  Sex: Female
  Weight: 51.7 kg

DRUGS (7)
  1. AMITIZA [Suspect]
     Indication: CONSTIPATION
     Dosage: 24 MCG, BID, ORAL
     Route: 048
     Dates: start: 20110907, end: 20110907
  2. CLONAZEPAM [Concomitant]
  3. ATENOLOL [Concomitant]
  4. FISH OIL (FISH OIL) [Concomitant]
  5. ASPIRIN [Concomitant]
  6. SYNTHROID [Concomitant]
  7. CRESTOR [Concomitant]

REACTIONS (6)
  - CHILLS [None]
  - DYSPNOEA [None]
  - CHEST DISCOMFORT [None]
  - TREMOR [None]
  - TACHYCARDIA [None]
  - PALPITATIONS [None]
